FAERS Safety Report 21907996 (Version 1)
Quarter: 2023Q1

REPORT INFORMATION
  Report Type: Spontaneous
  Country: DE (occurrence: DE)
  Receive Date: 20230125
  Receipt Date: 20230125
  Transmission Date: 20230417
  Serious: Yes (Other)
  Sender: FDA-Public Use
  Company Number: DE-PFIZER INC-PV202300010144

PATIENT
  Age: 32 Year
  Sex: Male

DRUGS (1)
  1. SOMAVERT [Suspect]
     Active Substance: PEGVISOMANT
     Dosage: 70 MG
     Dates: start: 2022

REACTIONS (1)
  - Acromegaly [Unknown]
